FAERS Safety Report 15200660 (Version 1)
Quarter: 2018Q3

REPORT INFORMATION
  Report Type: Spontaneous
  Country: GB (occurrence: GB)
  Receive Date: 20180726
  Receipt Date: 20180726
  Transmission Date: 20181010
  Serious: Yes (Other)
  Sender: FDA-Public Use
  Company Number: GB-TEVA-2018-GB-931050

PATIENT
  Age: 83 Year
  Sex: Female
  Weight: 67 kg

DRUGS (16)
  1. METFORMIN [Concomitant]
     Active Substance: METFORMIN HYDROCHLORIDE
     Dosage: 2 DOSAGE FORMS DAILY;
     Dates: start: 20180118
  2. LEVOTHYROXINE. [Concomitant]
     Active Substance: LEVOTHYROXINE
     Dosage: 1 DOSAGE FORMS DAILY; MORNING
     Dates: start: 20180118
  3. FERROUS FUMARATE [Concomitant]
     Active Substance: FERROUS FUMARATE
     Dosage: 1 DOSAGE FORMS DAILY; FOR AT LEAST 6 MONTHS
     Dates: start: 20180118
  4. RANITIDINE. [Concomitant]
     Active Substance: RANITIDINE
     Dosage: ONE OR TWO A DAY
     Dates: start: 20180118
  5. PARACETAMOL [Concomitant]
     Active Substance: ACETAMINOPHEN
     Dosage: TAKE 1 OR 2 FOUR TIMES A DAY WHEN REQUIRED.
     Dates: start: 20180118
  6. ADCAL [Concomitant]
     Active Substance: CALCIUM CARBONATE
     Dosage: 2 DOSAGE FORMS DAILY;
     Dates: start: 20180118
  7. SIMVASTATIN. [Concomitant]
     Active Substance: SIMVASTATIN
     Dosage: 1 DOSAGE FORMS DAILY; NIGHT
     Dates: start: 20180118
  8. UREA. [Concomitant]
     Active Substance: UREA
     Indication: ECZEMA
     Dosage: APPLY AS DIRECTED
     Dates: start: 20170927
  9. IBUPROFEN. [Concomitant]
     Active Substance: IBUPROFEN
     Dosage: 3 DOSAGE FORMS DAILY;
     Dates: start: 20180123
  10. FLUTICASONE. [Concomitant]
     Active Substance: FLUTICASONE
     Dosage: TRY TO REDUCE DOSE TO ONE PUFF TWICE DAILY. SEE...
     Dates: start: 20180118
  11. AMLODIPINE [Suspect]
     Active Substance: AMLODIPINE BESYLATE
     Route: 065
     Dates: start: 20180509
  12. ACETYLSALICYLIC ACID [Concomitant]
     Active Substance: ASPIRIN
     Dosage: 1 DOSAGE FORMS DAILY;
     Dates: start: 20180118
  13. QUININE [Concomitant]
     Active Substance: QUININE
     Dosage: USE AS DIRECTED OCCASIONALLY AT NIGHT FOR MUSCL...
     Dates: start: 20180118
  14. BECONASE AQ [Concomitant]
     Active Substance: BECLOMETHASONE DIPROPIONATE MONOHYDRATE
     Dosage: 4 DOSAGE FORMS DAILY; PUFFS.
     Dates: start: 20170927
  15. SALBUTAMOL [Concomitant]
     Active Substance: ALBUTEROL
     Route: 055
     Dates: start: 20170927
  16. ELOCON [Concomitant]
     Active Substance: MOMETASONE FUROATE
     Dosage: APPLY DAILY AS REQUIRED?PLEASE MAKE AN APPT TO ...
     Dates: start: 20170927

REACTIONS (1)
  - Dermatitis exfoliative [Unknown]

NARRATIVE: CASE EVENT DATE: 20180628
